FAERS Safety Report 9013429 (Version 1)
Quarter: 2013Q1

REPORT INFORMATION
  Report Type: Spontaneous
  Country: US (occurrence: None)
  Receive Date: 20130107
  Receipt Date: 20130107
  Transmission Date: 20140127
  Serious: Yes (Hospitalization)
  Sender: FDA-Public Use
  Company Number: None

PATIENT
  Sex: Female
  Weight: 76.4 kg

DRUGS (1)
  1. LEVOFLOXACIN [Suspect]
     Indication: LUNG INFILTRATION
     Dosage: 250 MG DAILY ORAL 047
     Route: 048

REACTIONS (3)
  - Stevens-Johnson syndrome [None]
  - Nephritis [None]
  - Renal failure [None]
